FAERS Safety Report 8809806 (Version 1)
Quarter: 2012Q4

REPORT INFORMATION
  Report Type: 
  Country: US (occurrence: US)
  Receive Date: 20120926
  Receipt Date: 20120926
  Transmission Date: 20130627
  Serious: Yes (Other)
  Sender: FDA-Public Use
  Company Number: US-ROCHE-792073

PATIENT
  Sex: Female
  Weight: 56.75 kg

DRUGS (3)
  1. ACCUTANE [Suspect]
     Indication: ACNE
     Route: 065
     Dates: start: 200306, end: 200307
  2. ACCUTANE [Suspect]
     Route: 065
     Dates: start: 2003, end: 2004
  3. AMNESTEEM [Suspect]
     Indication: ACNE
     Route: 065
     Dates: start: 200207, end: 200210

REACTIONS (5)
  - Proctitis ulcerative [Unknown]
  - Crohn^s disease [Unknown]
  - Inflammatory bowel disease [Unknown]
  - Emotional distress [Not Recovered/Not Resolved]
  - Irritable bowel syndrome [Unknown]
